FAERS Safety Report 19026038 (Version 2)
Quarter: 2021Q2

REPORT INFORMATION
  Report Type: Spontaneous
  Country: US (occurrence: US)
  Receive Date: 20210318
  Receipt Date: 20210506
  Transmission Date: 20210717
  Serious: Yes (Other)
  Sender: FDA-Public Use
  Company Number: US-REGENERON PHARMACEUTICALS, INC.-2021-33004

PATIENT

DRUGS (2)
  1. EYLEA [Suspect]
     Active Substance: AFLIBERCEPT
     Indication: NEOVASCULAR AGE-RELATED MACULAR DEGENERATION
     Dosage: 2 MG EVERY 8 WEEKS AND LATER EVERY 11 WEEKS IN LEFT EYE
     Route: 031
     Dates: start: 20180705
  2. EYLEA [Suspect]
     Active Substance: AFLIBERCEPT
     Dosage: 2MG IN RIGHT EYE
     Route: 031
     Dates: start: 20210127, end: 20210127

REACTIONS (2)
  - Open globe injury [Recovered/Resolved]
  - Wrong technique in product usage process [Unknown]

NARRATIVE: CASE EVENT DATE: 20210127
